FAERS Safety Report 14183182 (Version 1)
Quarter: 2017Q4

REPORT INFORMATION
  Report Type: Spontaneous
  Country: CN (occurrence: CN)
  Receive Date: 20171113
  Receipt Date: 20171113
  Transmission Date: 20180321
  Serious: Yes (Hospitalization, Other)
  Sender: FDA-Public Use
  Company Number: CN-BAYER-2017-216554

PATIENT
  Age: 64 Year
  Sex: Female

DRUGS (6)
  1. ACETYLSALICYLIC ACID({=100 MG) [Suspect]
     Active Substance: ASPIRIN
  2. CALCIUM [Concomitant]
     Active Substance: CALCIUM
  3. ATORVASTATIN [Concomitant]
     Active Substance: ATORVASTATIN
  4. CLOPIDOGREL [Concomitant]
     Active Substance: CLOPIDOGREL BISULFATE
  5. IOPROMIDE [Suspect]
     Active Substance: IOPROMIDE
     Indication: COMPUTERISED TOMOGRAM
     Dosage: UNK
  6. IOPROMIDE [Suspect]
     Active Substance: IOPROMIDE
     Indication: COMPUTERISED TOMOGRAM HEAD

REACTIONS (3)
  - Chest pain [Recovering/Resolving]
  - Vertigo [Recovered/Resolved]
  - Cerebrovascular disorder [Recovering/Resolving]
